FAERS Safety Report 23030889 (Version 2)
Quarter: 2023Q4

REPORT INFORMATION
  Report Type: Report from Study
  Country: US (occurrence: US)
  Receive Date: 20231005
  Receipt Date: 20231212
  Transmission Date: 20240110
  Serious: Yes (Other)
  Sender: FDA-Public Use
  Company Number: US-ABBVIE-5433905

PATIENT
  Age: 70 Year
  Sex: Female
  Weight: 82 kg

DRUGS (3)
  1. HUMIRA [Suspect]
     Active Substance: ADALIMUMAB
     Indication: Crohn^s disease
     Dosage: FORM STRENGTH- 40 MILLIGRAM?CITRATE FREE
     Route: 058
     Dates: start: 20100610
  2. IMURAN [Suspect]
     Active Substance: AZATHIOPRINE
     Indication: Product used for unknown indication
     Route: 065
  3. IMURAN [Suspect]
     Active Substance: AZATHIOPRINE
     Indication: Product used for unknown indication
     Route: 065

REACTIONS (5)
  - Intestinal dilatation [Unknown]
  - Asthma [Recovered/Resolved with Sequelae]
  - Crohn^s disease [Recovering/Resolving]
  - COVID-19 [Recovered/Resolved with Sequelae]
  - Immunodeficiency [Unknown]

NARRATIVE: CASE EVENT DATE: 20230201
